FAERS Safety Report 12491936 (Version 2)
Quarter: 2016Q3

REPORT INFORMATION
  Report Type: Report from Study
  Country: BR (occurrence: BR)
  Receive Date: 20160623
  Receipt Date: 20160826
  Transmission Date: 20161109
  Serious: Yes (Other)
  Sender: FDA-Public Use
  Company Number: BR-JNJFOC-20160618018

PATIENT
  Age: 22 Year
  Sex: Male

DRUGS (4)
  1. REMICADE [Suspect]
     Active Substance: INFLIXIMAB
     Indication: CROHN^S DISEASE
     Route: 042
     Dates: start: 20160509, end: 201605
  2. METHOTREXATE. [Concomitant]
     Active Substance: METHOTREXATE
  3. MESALAZINE [Concomitant]
     Active Substance: MESALAMINE
  4. AZATHIOPRINE. [Concomitant]
     Active Substance: AZATHIOPRINE

REACTIONS (4)
  - Drug hypersensitivity [Unknown]
  - Anaphylactic reaction [Recovered/Resolved]
  - Respiratory failure [Unknown]
  - Infusion related reaction [Recovered/Resolved]

NARRATIVE: CASE EVENT DATE: 2016
